FAERS Safety Report 24245719 (Version 1)
Quarter: 2024Q3

REPORT INFORMATION
  Report Type: Spontaneous
  Country: US (occurrence: None)
  Receive Date: 20240824
  Receipt Date: 20240824
  Transmission Date: 20241017
  Serious: No
  Sender: ASTRAZENECA
  Company Number: 2024A189053

PATIENT
  Sex: Male

DRUGS (1)
  1. FARXIGA [Suspect]
     Active Substance: DAPAGLIFLOZIN PROPANEDIOL
     Indication: Renal failure
     Dosage: 10.0MG UNKNOWN
     Route: 048

REACTIONS (5)
  - Rash [Recovering/Resolving]
  - Blood glucose increased [Unknown]
  - Renal impairment [Unknown]
  - Genital rash [Recovering/Resolving]
  - Incontinence [Unknown]
